FAERS Safety Report 4306478-6 (Version None)
Quarter: 2004Q1

REPORT INFORMATION
  Report Type: 
  Country: None (occurrence: None)
  Receive Date: 20040225
  Receipt Date: 20030731
  Transmission Date: 20041129
  Serious: No
  Sender: FDA-Public Use
  Company Number: US-BRISTOL-MYERS SQUIBB COMPANY-12356127

PATIENT
  Age: 39 Year
  Sex: Female
  Weight: 131 kg

DRUGS (2)
  1. EXCEDRIN ES TABS [Suspect]
     Indication: MIGRAINE
     Dosage: TAKES ^NO MORE THAN TWO DAILY^ FOR ^YEARS.^
  2. EXCEDRIN TENSION HEADACHE [Suspect]
     Indication: MIGRAINE

REACTIONS (2)
  - DRUG EFFECT DECREASED [None]
  - DRUG INEFFECTIVE [None]
